FAERS Safety Report 5256673-7 (Version None)
Quarter: 2007Q1

REPORT INFORMATION
  Report Type: 
  Country: None (occurrence: None)
  Receive Date: 20070306
  Receipt Date: 20070224
  Transmission Date: 20070707
  Serious: Yes (Other)
  Sender: FDA-Public Use
  Company Number: US-PFIZER INC-2006142694

PATIENT
  Sex: Female
  Weight: 72.6 kg

DRUGS (4)
  1. CHANTIX [Suspect]
     Indication: SMOKING CESSATION THERAPY
     Route: 048
     Dates: start: 20060927, end: 20061113
  2. CHANTIX [Suspect]
     Indication: NICOTINE DEPENDENCE
  3. VITAMIN CAP [Concomitant]
     Route: 048
  4. OMEGA 3 [Concomitant]
     Route: 048

REACTIONS (4)
  - BLOOD CHOLESTEROL INCREASED [None]
  - BLOOD URINE PRESENT [None]
  - DRUG INEFFECTIVE [None]
  - STEVENS-JOHNSON SYNDROME [None]
